FAERS Safety Report 5969521-4 (Version None)
Quarter: 2008Q4

REPORT INFORMATION
  Report Type: 
  Country: None (occurrence: None)
  Receive Date: 20081126
  Receipt Date: 20080910
  Transmission Date: 20090506
  Serious: No
  Sender: FDA-Public Use
  Company Number: US-ABBOTT-08P-163-0475463-00

PATIENT
  Sex: Female

DRUGS (9)
  1. SIMCOR [Suspect]
     Indication: BLOOD CHOLESTEROL
     Dosage: 1000/20MG DAILY
     Route: 048
     Dates: start: 20080801
  2. SIMCOR [Suspect]
     Indication: BLOOD TRIGLYCERIDES
  3. ATENOLOL [Concomitant]
     Indication: BLOOD PRESSURE
  4. GABAPENTIN [Concomitant]
     Indication: RESTLESS LEGS SYNDROME
  5. CLONAZEPAM [Concomitant]
     Indication: RESTLESS LEGS SYNDROME
  6. OMEPRAZOLE MAGNESIUM [Concomitant]
     Indication: GASTRIC DISORDER
  7. IRON [Concomitant]
     Indication: ANAEMIA
  8. ASCORBIC ACID [Concomitant]
     Indication: ANAEMIA
  9. VIGRAN [Concomitant]
     Indication: DRUG USE FOR UNKNOWN INDICATION

REACTIONS (5)
  - FEELING HOT [None]
  - PARAESTHESIA [None]
  - PRURITUS [None]
  - SKIN BURNING SENSATION [None]
  - SWELLING [None]
